FAERS Safety Report 6299018-6 (Version None)
Quarter: 2009Q3

REPORT INFORMATION
  Report Type: 
  Country: None (occurrence: None)
  Receive Date: 20090806
  Receipt Date: 20090723
  Transmission Date: 20100115
  Serious: Yes (Hospitalization)
  Sender: FDA-Public Use
  Company Number: PHHO2009US09255

PATIENT
  Sex: Female
  Weight: 61.2 kg

DRUGS (1)
  1. ACZ885 ACZ+ [Suspect]
     Indication: RHEUMATOID ARTHRITIS
     Dosage: 200 MG, Q2W
     Route: 058
     Dates: start: 20040119

REACTIONS (3)
  - CONCOMITANT DISEASE PROGRESSION [None]
  - HYSTERECTOMY [None]
  - UTERINE HAEMORRHAGE [None]
